FAERS Safety Report 23622410 (Version 1)
Quarter: 2024Q1

REPORT INFORMATION
  Report Type: Spontaneous
  Country: EG (occurrence: EG)
  Receive Date: 20240312
  Receipt Date: 20240312
  Transmission Date: 20240410
  Serious: Yes (Life-Threatening, Hospitalization, Other)
  Sender: FDA-Public Use
  Company Number: EG-SA-SAC20240312000083

PATIENT
  Age: 61 Year
  Sex: Female
  Weight: 85 kg

DRUGS (13)
  1. ENOXAPARIN SODIUM [Suspect]
     Active Substance: ENOXAPARIN SODIUM
     Dosage: UNK UNK, BID
     Route: 058
     Dates: start: 20231216, end: 20231227
  2. WARFARIN SODIUM [Suspect]
     Active Substance: WARFARIN SODIUM
     Dosage: UNK UNK, QD
     Dates: start: 20231222, end: 20231224
  3. WARFARIN SODIUM [Suspect]
     Active Substance: WARFARIN SODIUM
     Dosage: UNK UNK, QD
     Route: 048
     Dates: start: 20231216, end: 20231220
  4. LINEZOLID [Concomitant]
     Active Substance: LINEZOLID
     Indication: Endocarditis
     Dosage: 600 MG, BID
     Route: 042
     Dates: start: 20231211
  5. ACETAMINOPHEN [Concomitant]
     Active Substance: ACETAMINOPHEN
     Dosage: 1 G, QID
     Route: 042
     Dates: start: 20231220
  6. FEMARA [Concomitant]
     Active Substance: LETROZOLE
     Indication: Breast cancer
     Dosage: 2.5 MG, QD
     Route: 048
  7. SPIRONOLACTONE [Concomitant]
     Active Substance: SPIRONOLACTONE
     Dosage: 25 MG, QD
     Dates: start: 20231210
  8. PULMICORT TURBUHALER [Concomitant]
     Active Substance: BUDESONIDE
     Dosage: 0.5 MG, BID
     Dates: start: 20231219
  9. LANOXIN [Concomitant]
     Active Substance: DIGOXIN
     Dosage: 250 UG, QD
     Route: 048
     Dates: start: 20231220
  10. METOPROLOL SUCCINATE [Concomitant]
     Active Substance: METOPROLOL SUCCINATE
     Dosage: 50 MG, QD
     Route: 048
     Dates: start: 20231220
  11. GENTAMICIN [Concomitant]
     Active Substance: GENTAMICIN
     Indication: Endocarditis
     Dosage: 240 MG, QD
     Route: 042
     Dates: start: 20231210
  12. PROTOLOC [PANTOPRAZOLE] [Concomitant]
     Indication: Stress ulcer
     Dosage: 40 MG, QD
     Route: 048
     Dates: start: 20231210, end: 20231223
  13. ACENEWRAX [Concomitant]
     Dosage: 200 MG, QID
     Route: 048
     Dates: start: 20231219

REACTIONS (3)
  - Abdominal pain [Recovering/Resolving]
  - Gastrointestinal haemorrhage [Recovering/Resolving]
  - Haemoglobin decreased [Recovering/Resolving]

NARRATIVE: CASE EVENT DATE: 20231223
